FAERS Safety Report 4551564-9 (Version None)
Quarter: 2005Q1

REPORT INFORMATION
  Report Type: 
  Country: None (occurrence: None)
  Receive Date: 20050111
  Receipt Date: 20050106
  Transmission Date: 20050727
  Serious: Yes (Death)
  Sender: FDA-Public Use
  Company Number: 2005-BP-00168RO

PATIENT
  Age: 15 Month
  Sex: Male

DRUGS (1)
  1. METHADON HCL ELX [Suspect]
     Dosage: (SEE TEXT, ONCE), PO
     Route: 048

REACTIONS (1)
  - ACCIDENTAL EXPOSURE [None]
